FAERS Safety Report 25238932 (Version 1)
Quarter: 2025Q2

REPORT INFORMATION
  Report Type: Report from Study
  Country: CA (occurrence: CA)
  Receive Date: 20250425
  Receipt Date: 20250425
  Transmission Date: 20250717
  Serious: Yes (Other)
  Sender: NOVARTIS
  Company Number: CA-002147023-NVSC2024CA231068

PATIENT
  Age: 33 Year
  Sex: Female

DRUGS (2)
  1. KESIMPTA [Suspect]
     Active Substance: OFATUMUMAB
     Indication: Relapsing-remitting multiple sclerosis
     Dosage: 20 MG, QMO
     Route: 058
     Dates: start: 20240704
  2. KESIMPTA [Suspect]
     Active Substance: OFATUMUMAB
     Route: 058

REACTIONS (6)
  - Multiple sclerosis [Unknown]
  - Malaise [Unknown]
  - Nasal congestion [Unknown]
  - Cough [Unknown]
  - Productive cough [Unknown]
  - Respiratory tract congestion [Unknown]

NARRATIVE: CASE EVENT DATE: 20241128
